FAERS Safety Report 8200862-6 (Version None)
Quarter: 2012Q1

REPORT INFORMATION
  Report Type: 
  Country: None (occurrence: None)
  Receive Date: 20120312
  Receipt Date: 20110513
  Transmission Date: 20120608
  Serious: No
  Sender: FDA-Public Use
  Company Number: US-ABBOTT-11P-163-0725881-00

PATIENT
  Sex: Female

DRUGS (4)
  1. LUPRON DEPOT [Suspect]
     Dates: start: 20110404, end: 20110419
  2. LUPRON DEPOT [Suspect]
     Dates: start: 20101229, end: 20101229
  3. LUPRON DEPOT [Suspect]
     Indication: ENDOMETRIOSIS
     Route: 030
     Dates: start: 20100713, end: 20100713
  4. LUPRON DEPOT [Suspect]
     Indication: VAGINAL HAEMORRHAGE
     Dates: start: 20100921, end: 20100921

REACTIONS (4)
  - PAIN IN EXTREMITY [None]
  - INJECTION SITE PAIN [None]
  - ABSCESS LIMB [None]
  - ABSCESS [None]
